FAERS Safety Report 5406689-2 (Version None)
Quarter: 2007Q3

REPORT INFORMATION
  Report Type: 
  Country: None (occurrence: None)
  Receive Date: 20070803
  Receipt Date: 20070803
  Transmission Date: 20080115
  Serious: Yes (Other)
  Sender: FDA-Public Use
  Company Number: None

PATIENT
  Age: 30 Year
  Sex: Female
  Weight: 69.4 kg

DRUGS (2)
  1. THALIDOMIDE [Suspect]
     Indication: ENDOMETRIOSIS
     Dosage: 250 MG QHS PO  PT HAD TAPERED UP TO THAT DOSE BEGINNING 4/19/
     Route: 048
     Dates: start: 20070719, end: 20070727
  2. BIRTH CONTROL PILLS [Concomitant]

REACTIONS (4)
  - SPEECH DISORDER [None]
  - THINKING ABNORMAL [None]
  - TREMOR [None]
  - URINARY INCONTINENCE [None]
